FAERS Safety Report 12904798 (Version 3)
Quarter: 2019Q4

REPORT INFORMATION
  Report Type: Report from Study
  Country: None (occurrence: CA)
  Receive Date: 20161102
  Receipt Date: 20191118
  Transmission Date: 20200122
  Serious: Yes (Hospitalization, Disabling, Other)
  Sender: FDA-Public Use
  Company Number: CA-ABBVIE-16P-028-1767367-00

PATIENT
  Sex: Female

DRUGS (1)
  1. HUMIRA [Suspect]
     Active Substance: ADALIMUMAB
     Indication: CROHN^S DISEASE
     Route: 058
     Dates: start: 20110822

REACTIONS (11)
  - Skin lesion [Not Recovered/Not Resolved]
  - Hernia [Recovered/Resolved]
  - Chills [Recovered/Resolved]
  - Back pain [Not Recovered/Not Resolved]
  - Abdominal pain [Recovering/Resolving]
  - Stomal hernia [Not Recovered/Not Resolved]
  - Freezing phenomenon [Recovered/Resolved]
  - Adverse event [Not Recovered/Not Resolved]
  - Limb discomfort [Unknown]
  - Infection [Recovered/Resolved]
  - Skin cancer [Recovered/Resolved]

NARRATIVE: CASE EVENT DATE: 2016
